FAERS Safety Report 6154440-3 (Version None)
Quarter: 2009Q2

REPORT INFORMATION
  Report Type: 
  Country: None (occurrence: None)
  Receive Date: 20090414
  Receipt Date: 20050606
  Transmission Date: 20091009
  Serious: Yes (Other)
  Sender: FDA-Public Use
  Company Number: JP-ASTRAZENECA-2009UW08951

PATIENT
  Age: 65 Year
  Sex: Female

DRUGS (3)
  1. CRESTOR [Suspect]
     Route: 048
     Dates: start: 20050323, end: 20050405
  2. CRESTOR [Suspect]
     Route: 048
  3. TRICOR [Suspect]
     Dates: start: 20050323, end: 20050405

REACTIONS (3)
  - BLOOD CREATININE INCREASED [None]
  - RHABDOMYOLYSIS [None]
  - URINARY TRACT INFECTION [None]
